FAERS Safety Report 8168689-1 (Version None)
Quarter: 2012Q1

REPORT INFORMATION
  Report Type: 
  Country: None (occurrence: None)
  Receive Date: 20120103
  Receipt Date: 20111116
  Transmission Date: 20120608
  Serious: No
  Sender: FDA-Public Use
  Company Number: AE-2011-003598

PATIENT
  Age: 48 Year
  Sex: Male
  Weight: 93.8946 kg

DRUGS (5)
  1. LISINOPRIL [Concomitant]
  2. INCIVEK [Suspect]
     Dosage: 2250 MG (750 MG, 3 IN 1 D), ORAL
     Route: 048
     Dates: start: 20111031, end: 20111105
  3. PEGINTERFERON (PERINTERFERON ALFA-2A) [Concomitant]
  4. ATENOLOL [Concomitant]
  5. RIBAVIRIN [Concomitant]

REACTIONS (4)
  - DIARRHOEA [None]
  - RASH [None]
  - PRURITUS [None]
  - OEDEMA PERIPHERAL [None]
